FAERS Safety Report 9184490 (Version 2)
Quarter: 2013Q2

REPORT INFORMATION
  Report Type: Spontaneous
  Country: US (occurrence: US)
  Receive Date: 20130322
  Receipt Date: 20130627
  Transmission Date: 20140414
  Serious: Yes (Hospitalization, Other)
  Sender: FDA-Public Use
  Company Number: US-FRI-1000043554

PATIENT
  Age: 57 Year
  Sex: Female
  Weight: 63.6 kg

DRUGS (2)
  1. VIIBRYD [Suspect]
     Indication: DEPRESSION
     Dosage: 10-40 MG
     Dates: start: 20120801, end: 20120901
  2. LISINOPRIL [Concomitant]
     Indication: HYPERTENSION

REACTIONS (13)
  - Depression [Recovered/Resolved]
  - Suicidal ideation [Recovered/Resolved]
  - Loss of consciousness [Not Recovered/Not Resolved]
  - Concussion [Recovered/Resolved]
  - Joint swelling [Recovered/Resolved]
  - Dysgeusia [Recovered/Resolved]
  - Disinhibition [Recovered/Resolved]
  - Weight decreased [Recovered/Resolved]
  - Mental impairment [Recovered/Resolved]
  - Gait disturbance [Recovered/Resolved]
  - Crying [Recovered/Resolved]
  - Multiple fractures [Recovered/Resolved]
  - Migraine [Recovered/Resolved]
